FAERS Safety Report 7380508-X (Version None)
Quarter: 2011Q1

REPORT INFORMATION
  Report Type: 
  Country: None (occurrence: None)
  Receive Date: 20110321
  Receipt Date: 20110310
  Transmission Date: 20110831
  Serious: Yes (Hospitalization)
  Sender: FDA-Public Use
  Company Number: 008802

PATIENT
  Sex: Male
  Weight: 65.5 kg

DRUGS (5)
  1. FOLIC ACID [Concomitant]
  2. LISINOPRIL [Concomitant]
  3. PREDNISONE [Concomitant]
  4. CERTOLIZUMAB PEGOL [Suspect]
     Indication: RHEUMATOID ARTHRITIS
     Dosage: 200 MG 1X2 WEEKS, SUBCUTANEOUS
     Route: 058
  5. METHOTREXATE [Concomitant]

REACTIONS (5)
  - PRODUCTIVE COUGH [None]
  - HEART RATE INCREASED [None]
  - PYREXIA [None]
  - TACHYCARDIA [None]
  - DYSPNOEA [None]
